FAERS Safety Report 11835809 (Version 1)
Quarter: 2015Q4

REPORT INFORMATION
  Report Type: Spontaneous
  Country: JP (occurrence: JP)
  Receive Date: 20151215
  Receipt Date: 20151215
  Transmission Date: 20160305
  Serious: Yes (Other)
  Sender: FDA-Public Use
  Company Number: JP-009507513-1512JPN007349

PATIENT
  Sex: Female

DRUGS (7)
  1. AZOSEMIDE [Suspect]
     Active Substance: AZOSEMIDE
     Dosage: DAILY DOSE UNKNOWN, FORMULATION: POR
     Route: 048
  2. BENIDIPINE HYDROCHLORIDE [Suspect]
     Active Substance: BENIDIPINE HYDROCHLORIDE
     Dosage: DAILY DOSE UNKNOWN, FORMULATION: POR
     Route: 048
  3. VILDAGLIPTIN [Concomitant]
     Active Substance: VILDAGLIPTIN
     Dosage: DAILY DOSAGE UNKNOWN, FORMULATION:POR
     Route: 048
  4. CARBIDOPA (+) LEVODOPA [Suspect]
     Active Substance: CARBIDOPA\LEVODOPA
     Dosage: DAILY DOSE UNKNOWN
     Route: 048
  5. ZAFATEK [Suspect]
     Active Substance: TRELAGLIPTIN SUCCINATE
     Dosage: 50 MG, 1 WEEK
     Route: 048
     Dates: start: 2015
  6. INSULIN DETEMIR [Suspect]
     Active Substance: INSULIN DETEMIR
     Dosage: DAILY DOSE UNKNOWN
     Route: 051
  7. VOGLIBOSE [Suspect]
     Active Substance: VOGLIBOSE
     Dosage: DAILY DOSAGE UNKNOWN, FORMULATION: POR
     Route: 048

REACTIONS (1)
  - Cerebral infarction [Recovering/Resolving]

NARRATIVE: CASE EVENT DATE: 2015
